FAERS Safety Report 8134178-3 (Version None)
Quarter: 2012Q1

REPORT INFORMATION
  Report Type: 
  Country: None (occurrence: None)
  Receive Date: 20120214
  Receipt Date: 20120206
  Transmission Date: 20120608
  Serious: Yes (Death, Other)
  Sender: FDA-Public Use
  Company Number: US-ACCORD-012334

PATIENT
  Age: 17 Year
  Sex: Male

DRUGS (4)
  1. IMATINIB MESYLATE [Suspect]
     Indication: CHRONIC MYELOID LEUKAEMIA
     Dosage: STARTED 300MG/DAY + INCREASED TO 400MG/DAY THEN DISCONTINUED IN JUL-2009 + RESTRATED + HELD.
     Dates: start: 20090601
  2. CORTICOSTEROIDS [Concomitant]
  3. MYCOPHENOLATE MOFETIL [Suspect]
     Indication: IMMUNOSUPPRESSION
  4. TACROLIMUS [Suspect]
     Indication: IMMUNOSUPPRESSION

REACTIONS (5)
  - H1N1 INFLUENZA [None]
  - CHRONIC MYELOID LEUKAEMIA [None]
  - KIDNEY TRANSPLANT REJECTION [None]
  - BLOOD ALKALINE PHOSPHATASE INCREASED [None]
  - BLOOD CREATININE INCREASED [None]
